FAERS Safety Report 7519872-7 (Version None)
Quarter: 2011Q2

REPORT INFORMATION
  Report Type: 
  Country: None (occurrence: None)
  Receive Date: 20110524
  Receipt Date: 20110511
  Transmission Date: 20111010
  Serious: Yes (Other)
  Sender: FDA-Public Use
  Company Number: 20110363

PATIENT
  Age: 66 Year
  Sex: Male

DRUGS (1)
  1. BACTERIOSTATIC SODIUM CHLORIDE INJECTION, USP [Suspect]
     Indication: MEDICATION DILUTION
     Dosage: 0.35 ML, SUBCUTANEOUS
     Route: 058
     Dates: start: 20110211, end: 20110211

REACTIONS (3)
  - INJECTION SITE REACTION [None]
  - ANTIBIOTIC RESISTANT STAPHYLOCOCCUS TEST POSITIVE [None]
  - FURUNCLE [None]
